FAERS Safety Report 18533039 (Version 1)
Quarter: 2020Q4

REPORT INFORMATION
  Report Type: Spontaneous
  Country: US (occurrence: US)
  Receive Date: 20201120
  Receipt Date: 20201120
  Transmission Date: 20210114
  Serious: No
  Sender: FDA-Public Use
  Company Number: None

PATIENT
  Age: 71 Year
  Sex: Female

DRUGS (2)
  1. LETROZOLE 2.5 MG [Concomitant]
     Active Substance: LETROZOLE
     Dates: start: 20190514
  2. IBRANCE [Suspect]
     Active Substance: PALBOCICLIB
     Indication: BREAST CANCER METASTATIC
     Route: 048
     Dates: start: 20190514

REACTIONS (2)
  - Skin discolouration [None]
  - Contusion [None]

NARRATIVE: CASE EVENT DATE: 20201119
